FAERS Safety Report 5310808-6 (Version None)
Quarter: 2007Q2

REPORT INFORMATION
  Report Type: 
  Country: None (occurrence: None)
  Receive Date: 20070428
  Receipt Date: 20070417
  Transmission Date: 20071010
  Serious: Yes (Other)
  Sender: FDA-Public Use
  Company Number: US-PFIZER INC-2007011313

PATIENT
  Sex: Male
  Weight: 74 kg

DRUGS (21)
  1. UNASYN [Suspect]
     Indication: DECUBITUS ULCER
     Dates: start: 20070206, end: 20070207
  2. TRAZODONE HCL [Concomitant]
  3. COUMADIN [Concomitant]
     Dates: start: 20070206, end: 20070207
  4. AMIODARONE HCL [Concomitant]
     Dates: start: 20070206, end: 20070207
  5. LOPRESSOR [Concomitant]
     Dates: start: 20070206, end: 20070207
  6. TORADOL [Concomitant]
  7. SENSIPAR [Concomitant]
  8. PROCRIT [Concomitant]
     Route: 051
     Dates: start: 20070206, end: 20070207
  9. NEXIUM [Concomitant]
     Dates: start: 20070206, end: 20070207
  10. TYLENOL [Concomitant]
     Dates: start: 20070206, end: 20070207
  11. VITAMIN CAP [Concomitant]
     Dates: start: 20070206, end: 20070207
  12. NEPHROCAPS [Concomitant]
     Dates: start: 20070206, end: 20070207
  13. ALBUTEROL [Concomitant]
     Dates: start: 20070206, end: 20070207
  14. IPRATROPIUM BROMIDE [Concomitant]
     Dates: start: 20070206, end: 20070207
  15. ASPIRIN [Concomitant]
     Dates: start: 20070206, end: 20070207
  16. LIPITOR [Concomitant]
     Dates: start: 20070206, end: 20070207
  17. INSULIN [Concomitant]
     Dates: start: 20070206, end: 20070207
  18. REMERON [Concomitant]
     Dates: start: 20070206, end: 20070207
  19. MORPHINE [Concomitant]
     Dates: start: 20070206, end: 20070207
  20. NALOXONE [Concomitant]
     Dates: start: 20070206, end: 20070207
  21. ALL OTHER THERAPEUTIC PRODUCTS [Concomitant]

REACTIONS (1)
  - INTERNATIONAL NORMALISED RATIO INCREASED [None]
